FAERS Safety Report 9044181 (Version 1)
Quarter: 2013Q1

REPORT INFORMATION
  Report Type: Report from Study
  Country: US (occurrence: US)
  Receive Date: 20130130
  Receipt Date: 20130130
  Transmission Date: 20140127
  Serious: No
  Sender: FDA-Public Use
  Company Number: US-ABBOTT-12P-163-0953654-00

PATIENT
  Age: 77 Year
  Sex: Female

DRUGS (8)
  1. HUMIRA 40 MG/0.8 ML PEN [Suspect]
     Indication: RHEUMATOID ARTHRITIS
     Route: 050
  2. METHOTREXATE [Concomitant]
     Indication: PRODUCT USED FOR UNKNOWN INDICATION
  3. ALPRAZOLAM [Concomitant]
     Indication: INSOMNIA
     Dosage: 1 TAB AT NIGHT
  4. PREMARIN [Concomitant]
     Indication: HOT FLUSH
     Dosage: DAILY
  5. SPIRONOLACTONE [Concomitant]
     Indication: JOINT FLUID DRAINAGE
  6. CELEBREX [Concomitant]
     Indication: ARTHRITIS
     Dosage: 1-2 TABS DAILY
  7. BABY ASPIRIN [Concomitant]
     Indication: PRODUCT USED FOR UNKNOWN INDICATION
     Dosage: 1 TAB DAILY
  8. DIGOXIN [Concomitant]
     Indication: PALPITATIONS

REACTIONS (6)
  - Dry skin [Not Recovered/Not Resolved]
  - Injection site erythema [Recovered/Resolved]
  - Injection site erythema [Not Recovered/Not Resolved]
  - Injection site pruritus [Not Recovered/Not Resolved]
  - Poor quality drug administered [Unknown]
  - Injection site reaction [Unknown]
